FAERS Safety Report 19896069 (Version 1)
Quarter: 2021Q3

REPORT INFORMATION
  Report Type: Spontaneous
  Country: CH (occurrence: CH)
  Receive Date: 20210929
  Receipt Date: 20210929
  Transmission Date: 20211014
  Serious: Yes (Other)
  Sender: FDA-Public Use
  Company Number: CH-GILEAD-2021-0550396

PATIENT
  Sex: Male

DRUGS (2)
  1. TRUVADA [Suspect]
     Active Substance: EMTRICITABINE\TENOFOVIR DISOPROXIL FUMARATE
     Indication: HIV INFECTION
     Dosage: UNK
     Route: 065
  2. EFAVIRENZ. [Concomitant]
     Active Substance: EFAVIRENZ

REACTIONS (8)
  - Renal failure [Unknown]
  - Visceral leishmaniasis [Unknown]
  - Haemoglobin decreased [Unknown]
  - Hepatosplenomegaly [Unknown]
  - Weight decreased [Unknown]
  - Disseminated leishmaniasis [Unknown]
  - Glycosuria [Unknown]
  - Blood creatinine increased [Unknown]
